FAERS Safety Report 7443736-0 (Version None)
Quarter: 2011Q2

REPORT INFORMATION
  Report Type: 
  Country: None (occurrence: None)
  Receive Date: 20110428
  Receipt Date: 20100928
  Transmission Date: 20111010
  Serious: No
  Sender: FDA-Public Use
  Company Number: US-BAUSCH-2010BL005494

PATIENT
  Age: 79 Year
  Sex: Male

DRUGS (1)
  1. ALREX [Suspect]
     Route: 047
     Dates: start: 20100911, end: 20100911

REACTIONS (2)
  - WRONG DRUG ADMINISTERED [None]
  - EYE IRRITATION [None]
